FAERS Safety Report 10134220 (Version 3)
Quarter: 2014Q2

REPORT INFORMATION
  Report Type: Spontaneous
  Country: JP (occurrence: JP)
  Receive Date: 20140428
  Receipt Date: 20140507
  Transmission Date: 20141212
  Serious: Yes (Death, Life-Threatening)
  Sender: FDA-Public Use
  Company Number: JP-BRISTOL-MYERS SQUIBB COMPANY-20267795

PATIENT
  Age: 17 Year
  Sex: Female

DRUGS (6)
  1. METGLUCO [Suspect]
     Indication: TYPE 2 DIABETES MELLITUS
     Dosage: DOSAGE:2250 MG (750MG 3/DAY)
     Route: 048
     Dates: start: 201107
  2. SEIBULE [Concomitant]
     Indication: TYPE 2 DIABETES MELLITUS
     Route: 048
     Dates: start: 201204
  3. LIVALO [Concomitant]
     Indication: HYPERLIPIDAEMIA
     Route: 048
     Dates: start: 201301
  4. CHOLEBINE [Concomitant]
     Indication: HYPERLIPIDAEMIA
     Route: 048
     Dates: start: 201301
  5. DIOVAN [Concomitant]
     Indication: HYPERTENSION
     Route: 048
     Dates: start: 201301
  6. VICTOZA [Concomitant]
     Indication: TYPE 2 DIABETES MELLITUS
     Route: 058
     Dates: start: 20130420

REACTIONS (1)
  - Metabolic acidosis [Fatal]
